FAERS Safety Report 10503126 (Version 2)
Quarter: 2014Q4

REPORT INFORMATION
  Report Type: Report from Study
  Country: BR (occurrence: BR)
  Receive Date: 20141007
  Receipt Date: 20141007
  Transmission Date: 20150528
  Serious: Yes (Death, Hospitalization)
  Sender: FDA-Public Use
  Company Number: PHHY2007BR012263

PATIENT
  Age: 15 Year
  Sex: Female

DRUGS (6)
  1. AMN107 [Suspect]
     Active Substance: NILOTINIB
     Indication: CHRONIC MYELOID LEUKAEMIA
     Dosage: 200 MG, 4 TABS PER DAY
     Route: 048
     Dates: start: 20070601, end: 20070801
  2. CEFEPIME [Concomitant]
     Active Substance: CEFEPIME\CEFEPIME HYDROCHLORIDE
     Indication: PRODUCT USED FOR UNKNOWN INDICATION
     Dosage: UNK UKN, UNK
     Route: 065
     Dates: start: 20070930
  3. RANITIDINE [Concomitant]
     Active Substance: RANITIDINE\RANITIDINE HYDROCHLORIDE
     Indication: PRODUCT USED FOR UNKNOWN INDICATION
     Dosage: UNK UKN, UNK
     Route: 065
     Dates: start: 20070930
  4. TRAMADOL [Concomitant]
     Active Substance: TRAMADOL
     Indication: PRODUCT USED FOR UNKNOWN INDICATION
     Dosage: UNK UKN, UNK
     Route: 065
     Dates: start: 20070930
  5. FUROSEMIDE. [Concomitant]
     Active Substance: FUROSEMIDE
     Indication: PRODUCT USED FOR UNKNOWN INDICATION
     Dosage: UNK UKN, UNK
     Route: 065
     Dates: start: 20070930
  6. PREDNISONE. [Concomitant]
     Active Substance: PREDNISONE
     Indication: PRODUCT USED FOR UNKNOWN INDICATION
     Dosage: 25 MG, UNK
     Route: 065
     Dates: start: 20070930

REACTIONS (16)
  - Intracranial pressure increased [Fatal]
  - Somnolence [Unknown]
  - Malaise [Unknown]
  - Malignant neoplasm progression [Fatal]
  - Metrorrhagia [Unknown]
  - Respiratory distress [Unknown]
  - Fatigue [Unknown]
  - Tachycardia [Unknown]
  - Chronic myeloid leukaemia [Fatal]
  - Pyrexia [Unknown]
  - Asthenia [Unknown]
  - Cardiac failure [Unknown]
  - Abdominal pain [Unknown]
  - Cerebral haemorrhage [Fatal]
  - Pallor [Unknown]
  - Cough [Unknown]

NARRATIVE: CASE EVENT DATE: 20070904
